FAERS Safety Report 9447559 (Version 1)
Quarter: 2013Q3

REPORT INFORMATION
  Report Type: Spontaneous
  Country: US (occurrence: None)
  Receive Date: 20130805
  Receipt Date: 20130805
  Transmission Date: 20140515
  Serious: Yes (Life-Threatening, Hospitalization)
  Sender: FDA-Public Use
  Company Number: IMP_06763_2013

PATIENT
  Sex: 0

DRUGS (1)
  1. CARBIDOPA-LEVODOPA-B [Suspect]
     Indication: PARKINSON^S DISEASE
     Dosage: VIA JEJUNAL EXTENSION PERCUTANEOUS ENDOSCOPIC GASTROSTOMY TUBE

REACTIONS (2)
  - Perforated ulcer [None]
  - Catheter site erosion [None]
